FAERS Safety Report 17705675 (Version 2)
Quarter: 2020Q2

REPORT INFORMATION
  Report Type: Spontaneous
  Country: JP (occurrence: JP)
  Receive Date: 20200424
  Receipt Date: 20200629
  Transmission Date: 20200714
  Serious: Yes (Hospitalization, Other)
  Sender: FDA-Public Use
  Company Number: JP-JNJFOC-20200333312

PATIENT
  Age: 80 Year
  Sex: Male
  Weight: 87 kg

DRUGS (2)
  1. ERLEADA [Suspect]
     Active Substance: APALUTAMIDE
     Route: 048
     Dates: start: 20200305, end: 20200402
  2. ERLEADA [Suspect]
     Active Substance: APALUTAMIDE
     Indication: PROSTATE CANCER
     Dosage: AFTER BREAKFAST
     Route: 048
     Dates: start: 20200206, end: 20200304

REACTIONS (9)
  - Abdominal pain [Unknown]
  - Metastases to bone [Unknown]
  - Pain [Unknown]
  - Prostate cancer [Unknown]
  - Decreased appetite [Not Recovered/Not Resolved]
  - Drug ineffective [Unknown]
  - Weight decreased [Not Recovered/Not Resolved]
  - Delirium [Unknown]
  - Restlessness [Unknown]

NARRATIVE: CASE EVENT DATE: 2020
